FAERS Safety Report 24128362 (Version 2)
Quarter: 2024Q3

REPORT INFORMATION
  Report Type: Spontaneous
  Country: US (occurrence: US)
  Receive Date: 20240723
  Receipt Date: 20240904
  Transmission Date: 20241017
  Serious: No
  Sender: PFIZER
  Company Number: US-PFIZER INC-PV202400086516

PATIENT
  Age: 64 Year
  Sex: Male

DRUGS (1)
  1. TUKYSA [Suspect]
     Active Substance: TUCATINIB
     Indication: Colon cancer metastatic
     Dosage: 250 MG, 2X/DAY (ONE TABLET TWICE A DAY FOR THE 150 MG AND TWO TABLETS TWICE A DAY FOR THE 50 MG)

REACTIONS (1)
  - Neoplasm progression [Unknown]
